FAERS Safety Report 25368148 (Version 4)
Quarter: 2025Q2

REPORT INFORMATION
  Report Type: Spontaneous
  Country: US (occurrence: US)
  Receive Date: 20250528
  Receipt Date: 20250627
  Transmission Date: 20250716
  Serious: No
  Sender: PFIZER
  Company Number: US-PFIZER INC-202500105248

PATIENT
  Age: 34 Year
  Sex: Male
  Weight: 161.91 kg

DRUGS (1)
  1. GENOTROPIN [Suspect]
     Active Substance: SOMATROPIN
     Indication: Hypopituitarism
     Route: 058
     Dates: start: 20210728

REACTIONS (2)
  - Drug dose omission by device [Unknown]
  - Device defective [Unknown]
